FAERS Safety Report 5527723-5 (Version None)
Quarter: 2007Q4

REPORT INFORMATION
  Report Type: 
  Country: None (occurrence: None)
  Receive Date: 20071123
  Receipt Date: 20071109
  Transmission Date: 20080405
  Serious: Yes (Hospitalization)
  Sender: FDA-Public Use
  Company Number: 430003M07ITA

PATIENT
  Age: 29 Year
  Sex: Male

DRUGS (1)
  1. NOVANTRONE [Suspect]
     Indication: SECONDARY PROGRESSIVE MULTIPLE SCLEROSIS
     Dosage: 110 MG, INTRAVENOUS (NOT OTHERWISE SPECIFIED)
     Route: 042
     Dates: start: 20060125, end: 20060827

REACTIONS (2)
  - LEUKOPENIA [None]
  - PSYCHOTIC DISORDER [None]
